FAERS Safety Report 20108343 (Version 1)
Quarter: 2021Q4

REPORT INFORMATION
  Report Type: Spontaneous
  Country: US (occurrence: None)
  Receive Date: 20211123
  Receipt Date: 20211123
  Transmission Date: 20220303
  Serious: No
  Sender: FDA-Public Use
  Company Number: None

PATIENT
  Sex: Male

DRUGS (13)
  1. INLYTA [Suspect]
     Active Substance: AXITINIB
     Indication: Renal cancer
     Dosage: FREQUENCY : DAILY;?
     Route: 048
  2. INLYTA [Suspect]
     Active Substance: AXITINIB
     Indication: Lung neoplasm malignant
  3. INLYTA [Suspect]
     Active Substance: AXITINIB
     Indication: Hepatic cancer
  4. ASPIRIN [Concomitant]
     Active Substance: ASPIRIN
  5. CELEXA [Concomitant]
     Active Substance: CITALOPRAM HYDROBROMIDE
  6. VITAMINS [Concomitant]
     Active Substance: VITAMINS
  7. COREG [Concomitant]
     Active Substance: CARVEDILOL
  8. FLOMAX [Concomitant]
     Active Substance: TAMSULOSIN HYDROCHLORIDE
  9. KEYTRUDA [Concomitant]
     Active Substance: PEMBROLIZUMAB
  10. LISINOPRIL [Concomitant]
     Active Substance: LISINOPRIL
  11. PRILOSEC [Concomitant]
     Active Substance: OMEPRAZOLE MAGNESIUM
  12. VITAMIN D3 [Concomitant]
     Active Substance: CHOLECALCIFEROL
  13. ZOFRAN [Concomitant]
     Active Substance: ONDANSETRON HYDROCHLORIDE

REACTIONS (2)
  - Asthenia [None]
  - Disease progression [None]
